FAERS Safety Report 8850787 (Version 1)
Quarter: 2012Q4

REPORT INFORMATION
  Report Type: 
  Country: FR (occurrence: FR)
  Receive Date: 20121019
  Receipt Date: 20121019
  Transmission Date: 20130627
  Serious: Yes (Other)
  Sender: FDA-Public Use
  Company Number: FR-SANOFI-AVENTIS-2012SA074141

PATIENT
  Age: 65 Year
  Sex: Female

DRUGS (5)
  1. STILNOX [Suspect]
     Indication: DRUG USE FOR UNKNOWN INDICATION
     Route: 048
  2. ZOLEDRONIC ACID [Suspect]
     Indication: OSTEOPOROSIS
     Route: 051
     Dates: start: 20120721, end: 20120721
  3. TRANXENE [Concomitant]
     Indication: ANXIETY
     Route: 048
  4. SIMVASTATIN [Concomitant]
     Route: 048
  5. CALCIUM/VITAMIN D [Concomitant]

REACTIONS (4)
  - Synovitis [Recovered/Resolved]
  - Arthralgia [Recovered/Resolved]
  - Myalgia [Recovered/Resolved]
  - Hyperthermia [Recovered/Resolved]
